FAERS Safety Report 18153009 (Version 1)
Quarter: 2020Q3

REPORT INFORMATION
  Report Type: Report from Study
  Country: US (occurrence: US)
  Receive Date: 20200814
  Receipt Date: 20200814
  Transmission Date: 20201103
  Serious: Yes (Hospitalization)
  Sender: FDA-Public Use
  Company Number: US-IGSA-BIG0010961

PATIENT
  Age: 59 Year
  Sex: Female
  Weight: 81.18 kg

DRUGS (1)
  1. GAMUNEX?C [Suspect]
     Active Substance: HUMAN IMMUNOGLOBULIN G
     Indication: PRIMARY IMMUNODEFICIENCY SYNDROME
     Dosage: 30 GRAM, Q.M.T.
     Route: 042
     Dates: start: 20190429

REACTIONS (6)
  - Alanine aminotransferase increased [Recovered/Resolved]
  - Aspartate aminotransferase increased [Recovered/Resolved]
  - Abdominal pain [Recovered/Resolved]
  - Diarrhoea [Recovered/Resolved]
  - Suspected transmission of an infectious agent via product [Recovered/Resolved]
  - Hepatitis B [Recovered/Resolved]

NARRATIVE: CASE EVENT DATE: 20190501
